FAERS Safety Report 8028271-3 (Version None)
Quarter: 2012Q1

REPORT INFORMATION
  Report Type: 
  Country: None (occurrence: None)
  Receive Date: 20120106
  Receipt Date: 20111227
  Transmission Date: 20120608
  Serious: Yes (Congenital Anomaly, Other)
  Sender: FDA-Public Use
  Company Number: GB-BRISTOL-MYERS SQUIBB COMPANY-16089328

PATIENT
  Age: 1 Day
  Sex: Male

DRUGS (11)
  1. RAMIPRIL [Concomitant]
  2. ATAZANAVIR [Suspect]
     Route: 064
     Dates: start: 20100801, end: 20110901
  3. INSULIN [Concomitant]
  4. ZIDOVUDINE [Concomitant]
     Route: 042
  5. TRUVADA [Suspect]
     Dosage: 1DF=TAB/CAPS.
     Route: 064
     Dates: start: 20100316, end: 20100616
  6. ATRIPLA [Suspect]
     Dosage: ALSO TAKEN FROM SEP-2011 16JUN2010-AUG2010
     Route: 064
     Dates: start: 20100615
  7. LABETALOL HCL [Concomitant]
  8. METFORMIN HCL [Concomitant]
  9. FERROUS SULFATE TAB [Concomitant]
  10. NORVIR [Suspect]
     Route: 064
     Dates: start: 20100801, end: 20110901
  11. ASPIRIN [Concomitant]

REACTIONS (5)
  - CRYPTORCHISM [None]
  - CONJUNCTIVAL HAEMORRHAGE [None]
  - CONGENITAL TERATOMA [None]
  - FACIAL PARESIS [None]
  - RESPIRATORY DISTRESS [None]
